FAERS Safety Report 5200129-4 (Version None)
Quarter: 2007Q1

REPORT INFORMATION
  Report Type: 
  Country: None (occurrence: None)
  Receive Date: 20070103
  Receipt Date: 20061227
  Transmission Date: 20070707
  Serious: No
  Sender: FDA-Public Use
  Company Number: 163-21880-06120492

PATIENT
  Age: 76 Year
  Sex: Female

DRUGS (9)
  1. REVLIMID [Suspect]
     Indication: MULTIPLE MYELOMA
     Dosage: 25 MG, DAYS 1-21, ORAL
     Route: 048
     Dates: start: 20060725, end: 20061101
  2. LEVOXYL [Concomitant]
  3. ZOCOR 9SIMVASTATIN) [Concomitant]
  4. NEXIUM [Concomitant]
  5. LABETALOL HCL [Concomitant]
  6. VITAMIN E [Concomitant]
  7. ASPIRIN [Concomitant]
  8. MAGNESIUM (MAGNESIUM) [Concomitant]
  9. CARAFATE [Concomitant]

REACTIONS (5)
  - BLOODY DISCHARGE [None]
  - FATIGUE [None]
  - HAEMOGLOBIN DECREASED [None]
  - NAIL BED BLEEDING [None]
  - SKIN ULCER [None]
